FAERS Safety Report 11169222 (Version 1)
Quarter: 2015Q2

REPORT INFORMATION
  Report Type: Spontaneous
  Country: PK (occurrence: PK)
  Receive Date: 20150605
  Receipt Date: 20150605
  Transmission Date: 20150821
  Serious: Yes (Hospitalization, Other)
  Sender: FDA-Public Use
  Company Number: PHHY2015PK065015

PATIENT
  Age: 35 Year
  Sex: Male

DRUGS (2)
  1. INTERFERON ALFA NOS [Suspect]
     Active Substance: INTERFERON ALFA-2A OR INTERFERON ALFA-2B
     Indication: HEPATITIS C
     Route: 065
  2. RIBAVIRIN. [Suspect]
     Active Substance: RIBAVIRIN
     Indication: HEPATITIS C
     Route: 065

REACTIONS (7)
  - Demyelination [Unknown]
  - Clonus [Unknown]
  - Hypertonia [Unknown]
  - Hyperreflexia [Unknown]
  - Extensor plantar response [Unknown]
  - Blindness [Unknown]
  - Optic pathway injury [Unknown]
